FAERS Safety Report 24288623 (Version 1)
Quarter: 2024Q3

REPORT INFORMATION
  Report Type: Spontaneous
  Country: CA (occurrence: CA)
  Receive Date: 20240906
  Receipt Date: 20240906
  Transmission Date: 20241016
  Serious: Yes (Life-Threatening, Hospitalization, Other)
  Sender: AUROBINDO
  Company Number: CA-AUROBINDO-AUR-APL-2024-043511

PATIENT
  Age: 76 Year
  Sex: Male

DRUGS (1)
  1. ROSUVASTATIN [Suspect]
     Active Substance: ROSUVASTATIN\ROSUVASTATIN CALCIUM
     Indication: Cardiovascular event prophylaxis
     Dosage: 40 MILLIGRAM, ONCE A DAY
     Route: 048

REACTIONS (5)
  - Acute kidney injury [Recovering/Resolving]
  - Dialysis [Recovering/Resolving]
  - Gait inability [Recovering/Resolving]
  - Muscular weakness [Recovering/Resolving]
  - Rhabdomyolysis [Recovering/Resolving]
